FAERS Safety Report 9689762 (Version 1)
Quarter: 2013Q4

REPORT INFORMATION
  Report Type: Report from Study
  Country: US (occurrence: US)
  Receive Date: 20131115
  Receipt Date: 20131115
  Transmission Date: 20140711
  Serious: Yes (Hospitalization, Other)
  Sender: FDA-Public Use
  Company Number: US-JNJFOC-20131104349

PATIENT
  Age: 56 Year
  Sex: Female

DRUGS (4)
  1. REMICADE [Suspect]
     Indication: PSORIASIS
     Route: 042
  2. REMICADE [Suspect]
     Indication: RHEUMATOID ARTHRITIS
     Route: 042
  3. METHOTREXATE [Suspect]
     Indication: PSORIASIS
     Route: 048
  4. PLAQUENIL [Concomitant]
     Indication: ARTHRALGIA
     Route: 048

REACTIONS (3)
  - Pneumonia [Recovered/Resolved]
  - Skin cancer [Not Recovered/Not Resolved]
  - Tooth abscess [Recovered/Resolved]
